FAERS Safety Report 9635839 (Version 2)
Quarter: 2013Q4

REPORT INFORMATION
  Report Type: Spontaneous
  Country: US (occurrence: US)
  Receive Date: 20131021
  Receipt Date: 20131021
  Transmission Date: 20140711
  Serious: No
  Sender: FDA-Public Use
  Company Number: US-PURDUE-USA-2013-0102703

PATIENT
  Sex: Male
  Weight: 81.18 kg

DRUGS (2)
  1. BUTRANS [Suspect]
     Indication: PRODUCT USED FOR UNKNOWN INDICATION
     Dosage: 10 MCG/HR, WEEKLY
     Route: 062
     Dates: start: 20121108, end: 20130404
  2. FENTANYL /00174602/ [Suspect]
     Indication: PRODUCT USED FOR UNKNOWN INDICATION
     Dosage: 25 MCG, Q72H
     Route: 062
     Dates: start: 20120524

REACTIONS (3)
  - Application site burn [Unknown]
  - Application site rash [Unknown]
  - Somnolence [Unknown]
